FAERS Safety Report 7320203-6 (Version None)
Quarter: 2011Q1

REPORT INFORMATION
  Report Type: 
  Country: None (occurrence: None)
  Receive Date: 20110228
  Receipt Date: 20110223
  Transmission Date: 20110831
  Serious: Yes (Other)
  Sender: FDA-Public Use
  Company Number: PHHO2010US02376

PATIENT
  Sex: Male

DRUGS (1)
  1. GLEEVEC [Suspect]
     Indication: CHRONIC MYELOID LEUKAEMIA
     Dosage: 400 MG, QD
     Route: 048
     Dates: start: 20010125

REACTIONS (5)
  - EXTERNAL EAR LESION EXCISION [None]
  - SKIN LESION [None]
  - BASAL CELL CARCINOMA [None]
  - ATYPICAL FIBROXANTHOMA [None]
  - BIOPSY EAR ABNORMAL [None]
